FAERS Safety Report 8998255 (Version 1)
Quarter: 2013Q1

REPORT INFORMATION
  Report Type: Spontaneous
  Country: US (occurrence: US)
  Receive Date: 20130104
  Receipt Date: 20130104
  Transmission Date: 20140127
  Serious: Yes (Other)
  Sender: FDA-Public Use
  Company Number: US-PFIZER INC-2013000344

PATIENT
  Age: 65 Year
  Sex: Male

DRUGS (1)
  1. INLYTA [Suspect]
     Indication: LUNG NEOPLASM MALIGNANT
     Dosage: 5 MG, 2X/DAY
     Dates: start: 20121109

REACTIONS (4)
  - Circulatory collapse [Unknown]
  - Muscle spasms [Unknown]
  - Pharyngeal ulceration [Unknown]
  - Dysphagia [Unknown]
